FAERS Safety Report 7971993-0 (Version None)
Quarter: 2011Q4

REPORT INFORMATION
  Report Type: 
  Country: None (occurrence: None)
  Receive Date: 20111212
  Receipt Date: 20111201
  Transmission Date: 20120403
  Serious: Yes (Hospitalization)
  Sender: FDA-Public Use
  Company Number: US-ASTRAZENECA-2011SE73339

PATIENT
  Sex: Female

DRUGS (2)
  1. MULTIPLE MEDICATION [Concomitant]
  2. VIMOVO [Suspect]
     Indication: ARTHRALGIA
     Dosage: 500/20
     Route: 048

REACTIONS (1)
  - ATAXIA [None]
